FAERS Safety Report 22195874 (Version 4)
Quarter: 2023Q2

REPORT INFORMATION
  Report Type: Spontaneous
  Country: US (occurrence: US)
  Receive Date: 20230411
  Receipt Date: 20230516
  Transmission Date: 20230722
  Serious: No
  Sender: FDA-Public Use
  Company Number: US-ASTELLAS-2022US013723

PATIENT
  Age: 60 Year
  Sex: Female

DRUGS (2)
  1. PROGRAF [Suspect]
     Active Substance: TACROLIMUS
     Indication: Renal transplant
     Dosage: UNK UNK, TWICE DAILY (1.4 MG IN THE MORNING THEN 1.6 MG IN THE EVENING)
     Route: 050
  2. PROGRAF [Suspect]
     Active Substance: TACROLIMUS
     Indication: Renal transplant
     Dosage: UNK UNK, TWICE DAILY (1.4 MG IN THE MORNING THEN 1.6 MG IN THE EVENING)
     Route: 050

REACTIONS (2)
  - Immunosuppressant drug level decreased [Unknown]
  - Off label use [Unknown]
